FAERS Safety Report 8293451-9 (Version None)
Quarter: 2012Q2

REPORT INFORMATION
  Report Type: 
  Country: None (occurrence: None)
  Receive Date: 20120417
  Receipt Date: 20120411
  Transmission Date: 20120825
  Serious: Yes (Hospitalization)
  Sender: FDA-Public Use
  Company Number: US-MERCK-1112USA00931

PATIENT
  Age: 63 Year
  Sex: Female
  Weight: 43 kg

DRUGS (4)
  1. NEXIUM [Concomitant]
     Indication: GASTROOESOPHAGEAL REFLUX DISEASE
     Route: 048
     Dates: start: 19990101
  2. LUMIGAN [Concomitant]
     Indication: GLAUCOMA
     Route: 048
     Dates: start: 19960101
  3. ALENDRONATE SODIUM [Suspect]
     Indication: OSTEOPOROSIS
     Route: 048
  4. FOSAMAX [Suspect]
     Indication: OSTEOPOROSIS
     Route: 048
     Dates: start: 20010101, end: 20080301

REACTIONS (27)
  - ASTHMA [None]
  - HYPERTENSION [None]
  - DRUG HYPERSENSITIVITY [None]
  - NASAL SEPTUM DISORDER [None]
  - INTERVERTEBRAL DISC DEGENERATION [None]
  - VERTIGO [None]
  - ARTHRALGIA [None]
  - GAIT DISTURBANCE [None]
  - CORONARY ARTERY DISEASE [None]
  - FALL [None]
  - WRIST FRACTURE [None]
  - HEADACHE [None]
  - MENISCUS LESION [None]
  - TOOTH DISORDER [None]
  - CHRONIC OBSTRUCTIVE PULMONARY DISEASE [None]
  - CAROTID ARTERY STENOSIS [None]
  - HERPES ZOSTER [None]
  - NECK PAIN [None]
  - NASAL DISORDER [None]
  - CATARACT [None]
  - ORAL DISORDER [None]
  - FEMUR FRACTURE [None]
  - ALLERGY TO VACCINE [None]
  - OSTEOARTHRITIS [None]
  - CEREBRAL SMALL VESSEL ISCHAEMIC DISEASE [None]
  - BURSITIS [None]
  - HYPERLIPIDAEMIA [None]
